FAERS Safety Report 25253887 (Version 1)
Quarter: 2025Q2

REPORT INFORMATION
  Report Type: Spontaneous
  Country: US (occurrence: US)
  Receive Date: 20250430
  Receipt Date: 20250430
  Transmission Date: 20250716
  Serious: No
  Sender: JOHNSON AND JOHNSON
  Company Number: US-JNJFOC-20250425460

PATIENT
  Sex: Female

DRUGS (9)
  1. STELARA [Suspect]
     Active Substance: USTEKINUMAB
     Indication: Pruritus
     Route: 058
  2. STELARA [Suspect]
     Active Substance: USTEKINUMAB
  3. PROPRANOLOL [Concomitant]
     Active Substance: PROPRANOLOL HYDROCHLORIDE
  4. ATORVASTATIN [Concomitant]
     Active Substance: ATORVASTATIN
  5. CITALOPRAM [Concomitant]
     Active Substance: CITALOPRAM
  6. HYDROCORTISONE [Concomitant]
     Active Substance: HYDROCORTISONE
  7. LAMOTRIGINE [Concomitant]
     Active Substance: LAMOTRIGINE
  8. MONTELUKAST [Concomitant]
     Active Substance: MONTELUKAST
  9. VARENICLINE [Concomitant]
     Active Substance: VARENICLINE

REACTIONS (2)
  - Fatigue [Unknown]
  - Off label use [Unknown]
